FAERS Safety Report 7860691-X (Version None)
Quarter: 2011Q4

REPORT INFORMATION
  Report Type: 
  Country: None (occurrence: None)
  Receive Date: 20111027
  Receipt Date: 20111017
  Transmission Date: 20120403
  Serious: Yes (Other)
  Sender: FDA-Public Use
  Company Number: US-BAYER-2010-002706

PATIENT
  Age: 26 Year
  Sex: Female
  Weight: 59 kg

DRUGS (1)
  1. YASMIN [Suspect]
     Dosage: UNK
     Dates: start: 20080301, end: 20080901

REACTIONS (2)
  - CHOLECYSTITIS ACUTE [None]
  - GALLBLADDER NON-FUNCTIONING [None]
